FAERS Safety Report 6899879-3 (Version None)
Quarter: 2010Q3

REPORT INFORMATION
  Report Type: 
  Country: None (occurrence: None)
  Receive Date: 20100803
  Receipt Date: 20100211
  Transmission Date: 20110219
  Serious: Yes (Hospitalization)
  Sender: FDA-Public Use
  Company Number: CO-ASTRAZENECA-2010SE06148

PATIENT
  Age: 14 Year
  Sex: Female
  Weight: 42 kg

DRUGS (2)
  1. SEROQUEL [Suspect]
     Route: 048
     Dates: start: 20100131, end: 20100131
  2. ANALGESIC [Suspect]

REACTIONS (2)
  - SOMNOLENCE [None]
  - WRONG DRUG ADMINISTERED [None]
